FAERS Safety Report 8275527-5 (Version None)
Quarter: 2012Q2

REPORT INFORMATION
  Report Type: 
  Country: None (occurrence: None)
  Receive Date: 20120411
  Receipt Date: 20120403
  Transmission Date: 20120825
  Serious: Yes (Hospitalization, Other)
  Sender: FDA-Public Use
  Company Number: US-BRISTOL-MYERS SQUIBB COMPANY-15882152

PATIENT
  Age: 31 Year
  Sex: Male
  Weight: 63 kg

DRUGS (10)
  1. PACLITAXEL [Suspect]
     Indication: NON-SMALL CELL LUNG CANCER
     Dosage: LAST DOSE:15JUN10
     Route: 042
     Dates: start: 20100525, end: 20100624
  2. CARBOPLATIN [Suspect]
     Indication: NON-SMALL CELL LUNG CANCER
     Dosage: AUC=6,LAST DOSE:15JUN10
     Route: 042
     Dates: start: 20100525, end: 20100624
  3. MULTI-VITAMIN [Concomitant]
     Dates: start: 20100702, end: 20101101
  4. CIPROFLOXACIN HYDROCHLORIDE [Concomitant]
     Dates: start: 20101014, end: 20101101
  5. ALOXI [Concomitant]
     Dates: start: 20100525, end: 20100615
  6. PEPCID [Concomitant]
     Dates: start: 20100525, end: 20100615
  7. BENADRYL [Concomitant]
     Dates: start: 20100525, end: 20100615
  8. DECADRON [Concomitant]
     Dates: start: 20100525, end: 20100615
  9. BEVACIZUMAB [Suspect]
     Indication: NON-SMALL CELL LUNG CANCER
     Dosage: LAST DOSE:15JUN10
     Route: 042
     Dates: start: 20100525, end: 20100624
  10. EMEND [Concomitant]
     Dates: start: 20100525, end: 20100615

REACTIONS (2)
  - HYDROPNEUMOTHORAX [None]
  - PYREXIA [None]
